FAERS Safety Report 9205173 (Version 1)
Quarter: 2013Q2

REPORT INFORMATION
  Report Type: Spontaneous
  Country: US (occurrence: US)
  Receive Date: 20130402
  Receipt Date: 20130402
  Transmission Date: 20140414
  Serious: No
  Sender: FDA-Public Use
  Company Number: US-ASTRAZENECA-2013SE18746

PATIENT
  Age: 69 Year
  Sex: Female
  Weight: 90.7 kg

DRUGS (18)
  1. NEXIUM [Suspect]
     Indication: GASTROOESOPHAGEAL REFLUX DISEASE
     Route: 048
     Dates: start: 2003, end: 2011
  2. NEXIUM [Suspect]
     Indication: GASTROOESOPHAGEAL REFLUX DISEASE
     Route: 048
     Dates: start: 20130319
  3. LISINOPRIL [Suspect]
     Indication: BLOOD PRESSURE ABNORMAL
     Route: 048
     Dates: start: 2012
  4. METHOTREXATE [Suspect]
     Route: 065
  5. RANTIDINE [Concomitant]
     Indication: GASTROOESOPHAGEAL REFLUX DISEASE
     Dates: start: 201303
  6. GENERIC PLAQUENIL [Concomitant]
     Indication: RHEUMATOID ARTHRITIS
     Dates: start: 20130118
  7. LUTEIN [Concomitant]
     Indication: RHEUMATOID ARTHRITIS
     Dates: start: 20130118
  8. NIFEDIPINE [Concomitant]
     Indication: BLOOD PRESSURE ABNORMAL
  9. ADVAIR 250-50 [Concomitant]
     Indication: ASTHMA
     Route: 055
     Dates: start: 2003
  10. PROAIR [Concomitant]
     Indication: ASTHMA
     Dosage: PRN
  11. SINGULAIR [Concomitant]
     Indication: ASTHMA
     Dosage: HS
  12. FISH OIL [Concomitant]
  13. VITAMIN D [Concomitant]
  14. MAGNESIUM [Concomitant]
  15. MIRALAX [Concomitant]
  16. COLACE [Concomitant]
  17. MULTIVITAMIN [Concomitant]
  18. SYNTHROID [Concomitant]
     Indication: THYROID THERAPY
     Dosage: 112MCG DAILY
     Dates: start: 1976

REACTIONS (7)
  - Upper respiratory tract infection [Unknown]
  - Dysphonia [Unknown]
  - Hypertension [Unknown]
  - Rash papular [Unknown]
  - Rheumatoid arthritis [Unknown]
  - Off label use [Recovered/Resolved]
  - Drug ineffective [Unknown]
